FAERS Safety Report 9080675 (Version 1)
Quarter: 2013Q1

REPORT INFORMATION
  Report Type: Report from Study
  Country: US (occurrence: US)
  Receive Date: 20130130
  Receipt Date: 20130130
  Transmission Date: 20140127
  Serious: No
  Sender: FDA-Public Use
  Company Number: US-ABBOTT-12P-163-0963910-00

PATIENT
  Sex: Male

DRUGS (5)
  1. HUMIRA 40 MG/0.8 ML PEN [Suspect]
     Indication: CROHN^S DISEASE
     Route: 058
     Dates: start: 20120802
  2. BELLADONNA-PHENOBARBITAL [Concomitant]
  3. LOMOTIL [Concomitant]
  4. PREDNISONE [Concomitant]
  5. ASACOL EC [Concomitant]

REACTIONS (3)
  - Injection site erythema [Unknown]
  - Injection site rash [Unknown]
  - Injection site pruritus [Unknown]
